FAERS Safety Report 5420640-0 (Version None)
Quarter: 2007Q3

REPORT INFORMATION
  Report Type: 
  Country: None (occurrence: None)
  Receive Date: 20070821
  Receipt Date: 20070815
  Transmission Date: 20080115
  Serious: No
  Sender: FDA-Public Use
  Company Number: TH-BAXTER-2007BH007091

PATIENT
  Age: 67 Year
  Sex: Male
  Weight: 72 kg

DRUGS (6)
  1. NITROGLYCERIN IN DEXTROSE 5% [Suspect]
     Indication: ARTERIOSPASM CORONARY
     Route: 065
     Dates: start: 20070724, end: 20070724
  2. CANGRELOR VS. PLACEBO (CODE NOT BROKEN) INJECTION [Suspect]
     Indication: PERCUTANEOUS CORONARY INTERVENTION
     Route: 040
     Dates: start: 20070724, end: 20070724
  3. CANGRELOR VS. PLACEBO (CODE NOT BROKEN) INJECTION [Suspect]
     Route: 042
     Dates: start: 20070724, end: 20070724
  4. CLOPIDOGREL [Suspect]
     Indication: PERCUTANEOUS CORONARY INTERVENTION
     Route: 048
     Dates: end: 20070724
  5. CLOPIDOGREL [Suspect]
     Route: 048
     Dates: start: 20070724, end: 20070724
  6. HEPARIN [Concomitant]
     Indication: DRUG USE FOR UNKNOWN INDICATION
     Dosage: DOSE UNIT:UNKNOWN
     Route: 065

REACTIONS (4)
  - DYSPNOEA [None]
  - HEADACHE [None]
  - HYPOTENSION [None]
  - VOMITING [None]
